FAERS Safety Report 17711780 (Version 1)
Quarter: 2020Q2

REPORT INFORMATION
  Report Type: Spontaneous
  Country: US (occurrence: US)
  Receive Date: 20200426
  Receipt Date: 20200426
  Transmission Date: 20200714
  Serious: Yes (Other)
  Sender: FDA-Public Use
  Company Number: None

PATIENT
  Age: 51 Year
  Sex: Male
  Weight: 74.25 kg

DRUGS (6)
  1. IMITREX [Concomitant]
     Active Substance: SUMATRIPTAN SUCCINATE
  2. PROMETHAZINE [Concomitant]
     Active Substance: PROMETHAZINE HYDROCHLORIDE
  3. CENTRUM MULTIVITAMINS [Concomitant]
     Active Substance: VITAMINS
  4. IBUPROFEN. [Concomitant]
     Active Substance: IBUPROFEN
  5. EMGALITY [Suspect]
     Active Substance: GALCANEZUMAB-GNLM
     Indication: MIGRAINE
     Dosage: ?          QUANTITY:1 INJECTION(S);OTHER FREQUENCY:ONCE PER MONTH;?
     Route: 030
     Dates: start: 20190301, end: 20200426
  6. NORCO [Concomitant]
     Active Substance: ACETAMINOPHEN\HYDROCODONE BITARTRATE

REACTIONS (5)
  - Ageusia [None]
  - Blood pressure increased [None]
  - Adverse drug reaction [None]
  - Anosmia [None]
  - Fatigue [None]

NARRATIVE: CASE EVENT DATE: 20190315
